FAERS Safety Report 10235092 (Version 1)
Quarter: 2014Q2

REPORT INFORMATION
  Report Type: Spontaneous
  Country: US (occurrence: None)
  Receive Date: 20140612
  Receipt Date: 20140612
  Transmission Date: 20141212
  Serious: Yes (Other)
  Sender: FDA-Public Use
  Company Number: None

PATIENT
  Age: 41 Year
  Sex: Female
  Weight: 90.72 kg

DRUGS (3)
  1. UP AND UP ASPIRIN [Suspect]
     Indication: PROPHYLAXIS
     Route: 048
     Dates: start: 20140611
  2. MULTI VITAMIN [Concomitant]
  3. DAILY ASPIRIN [Concomitant]

REACTIONS (6)
  - Somnolence [None]
  - Dizziness [None]
  - Lethargy [None]
  - Impaired driving ability [None]
  - Accidental exposure to product [None]
  - Product commingling [None]
